FAERS Safety Report 4738683-9 (Version None)
Quarter: 2005Q3

REPORT INFORMATION
  Report Type: 
  Country: None (occurrence: None)
  Receive Date: 20050729
  Receipt Date: 20040816
  Transmission Date: 20060218
  Serious: Yes (Life-Threatening)
  Sender: FDA-Public Use
  Company Number: US-2004-030339

PATIENT
  Age: 41 Year
  Sex: Female
  Weight: 77.1 kg

DRUGS (1)
  1. MAGNEVIST [Suspect]
     Indication: NUCLEAR MAGNETIC RESONANCE IMAGING
     Dosage: 17 ML, 1 DOSE, INTRAVENOUS
     Route: 042
     Dates: start: 20040708, end: 20040708

REACTIONS (3)
  - NASAL CONGESTION [None]
  - SALIVARY HYPERSECRETION [None]
  - URTICARIA [None]
